FAERS Safety Report 6559238-X (Version None)
Quarter: 2010Q1

REPORT INFORMATION
  Report Type: 
  Country: None (occurrence: None)
  Receive Date: 20100129
  Receipt Date: 20090903
  Transmission Date: 20100710
  Serious: No
  Sender: FDA-Public Use
  Company Number: US-ABBOTT-09P-163-0593748-00

PATIENT
  Sex: Female

DRUGS (2)
  1. HUMIRA [Suspect]
     Indication: SPONDYLOARTHROPATHY
     Dates: start: 20081001
  2. HUMIRA [Suspect]

REACTIONS (3)
  - ASPARTATE AMINOTRANSFERASE INCREASED [None]
  - RESPIRATORY TRACT INFECTION [None]
  - SPONDYLOARTHROPATHY [None]
